FAERS Safety Report 18247634 (Version 1)
Quarter: 2020Q3

REPORT INFORMATION
  Report Type: Spontaneous
  Country: GB (occurrence: GB)
  Receive Date: 20200909
  Receipt Date: 20200909
  Transmission Date: 20201103
  Serious: Yes (Hospitalization)
  Sender: FDA-Public Use
  Company Number: GB-TEVA-2020-GB-1824404

PATIENT
  Age: 25 Year
  Sex: Male
  Weight: 156 kg

DRUGS (1)
  1. NAPROXEN. [Suspect]
     Active Substance: NAPROXEN
     Indication: ANALGESIC THERAPY
     Dosage: 1000 MG
     Route: 048
     Dates: start: 20200720, end: 20200805

REACTIONS (4)
  - Syncope [Unknown]
  - Gastritis haemorrhagic [Recovering/Resolving]
  - Melaena [Unknown]
  - Hypotension [Unknown]

NARRATIVE: CASE EVENT DATE: 20200805
